FAERS Safety Report 10717479 (Version 1)
Quarter: 2015Q1

REPORT INFORMATION
  Report Type: Spontaneous
  Country: FR (occurrence: FR)
  Receive Date: 20150116
  Receipt Date: 20150116
  Transmission Date: 20150721
  Serious: Yes (Life-Threatening, Hospitalization)
  Sender: FDA-Public Use
  Company Number: FR-PFIZER INC-2015016517

PATIENT
  Age: 47 Year
  Sex: Female

DRUGS (10)
  1. EFFEXOR [Suspect]
     Active Substance: VENLAFAXINE HYDROCHLORIDE
     Dosage: UNK
  2. ALPRAZOLAM. [Suspect]
     Active Substance: ALPRAZOLAM
     Dosage: UNK
  3. SERESTA [Suspect]
     Active Substance: OXAZEPAM
     Dosage: 25 MG IN THE MORNING, AT NOON, IN THE EVENING AND 50 MG AT BEDTIME
  4. LIDOCAINE. [Suspect]
     Active Substance: LIDOCAINE
     Dosage: UNK
  5. SERESTA [Suspect]
     Active Substance: OXAZEPAM
     Dosage: UNK
  6. EFFEXOR [Suspect]
     Active Substance: VENLAFAXINE HYDROCHLORIDE
     Dosage: 3 DF, 1X/DAY IN THE MORNING
  7. TERCIAN [Suspect]
     Active Substance: CYAMEMAZINE
     Dosage: UNK
  8. TRAMADOL HYDROCHLORIDE. [Suspect]
     Active Substance: TRAMADOL HYDROCHLORIDE
     Dosage: UNK
  9. LAROXYL [Suspect]
     Active Substance: AMITRIPTYLINE
     Dosage: 100 MG, DAILY
  10. NOCTAMID [Suspect]
     Active Substance: LORMETAZEPAM
     Dosage: 2 MG, DAILY

REACTIONS (3)
  - Toxicity to various agents [Recovered/Resolved]
  - Depressed level of consciousness [Recovered/Resolved]
  - Miosis [Recovered/Resolved]

NARRATIVE: CASE EVENT DATE: 20140513
